FAERS Safety Report 5905035-5 (Version None)
Quarter: 2008Q3

REPORT INFORMATION
  Report Type: 
  Country: None (occurrence: None)
  Receive Date: 20080909
  Receipt Date: 20080129
  Transmission Date: 20090109
  Serious: Yes (Disabling, Other)
  Sender: FDA-Public Use
  Company Number: 163-20785-07110746

PATIENT
  Age: 65 Year
  Sex: Male

DRUGS (7)
  1. THALOMID [Suspect]
     Indication: MULTIPLE MYELOMA
     Dosage: 50 MG TO 200 MG AT BEDTIME, ORAL
     Route: 048
     Dates: start: 20051003, end: 20070101
  2. CYTOXAN [Concomitant]
  3. DIFLUCAN [Concomitant]
  4. MULTIVITAMIN [Concomitant]
  5. SELENIUM (SELENIUM) [Concomitant]
  6. PREVACID [Concomitant]
  7. ZETIA [Concomitant]

REACTIONS (7)
  - BLINDNESS TRANSIENT [None]
  - CONSTIPATION [None]
  - DRUG INEFFECTIVE [None]
  - LEUKOPENIA [None]
  - NEUROPATHY PERIPHERAL [None]
  - TRANSIENT ISCHAEMIC ATTACK [None]
  - UNEVALUABLE EVENT [None]
